FAERS Safety Report 8528387-9 (Version None)
Quarter: 2012Q3

REPORT INFORMATION
  Report Type: 
  Country: None (occurrence: None)
  Receive Date: 20120722
  Receipt Date: 20120716
  Transmission Date: 20120928
  Serious: No
  Sender: FDA-Public Use
  Company Number: US-009507513-1207USA005278

PATIENT

DRUGS (3)
  1. PEG-INTRON [Suspect]
     Indication: HEPATITIS C
     Dosage: 120 MICROGRAM, QW
     Route: 058
     Dates: start: 20101001
  2. TELAPREVIR [Suspect]
     Dosage: UNK
     Dates: start: 20120713
  3. RIBASPHERE [Suspect]

REACTIONS (4)
  - ALOPECIA [None]
  - WEIGHT DECREASED [None]
  - HEADACHE [None]
  - ANAEMIA [None]
